FAERS Safety Report 13104865 (Version 1)
Quarter: 2017Q1

REPORT INFORMATION
  Report Type: Spontaneous
  Country: GB (occurrence: GB)
  Receive Date: 20170111
  Receipt Date: 20170111
  Transmission Date: 20170428
  Serious: Yes (Hospitalization, Other)
  Sender: FDA-Public Use
  Company Number: GB-TEVA-727763ACC

PATIENT
  Age: 77 Year
  Sex: Female
  Weight: 109 kg

DRUGS (14)
  1. ATORVASTATIN [Concomitant]
     Active Substance: ATORVASTATIN
     Dosage: 10 MILLIGRAM DAILY;
     Dates: start: 20161010, end: 20161223
  2. ATORVASTATIN [Concomitant]
     Active Substance: ATORVASTATIN
     Dates: start: 20161010
  3. BISOPROLOL [Concomitant]
     Active Substance: BISOPROLOL
     Dosage: 10 MILLIGRAM DAILY;
     Dates: start: 20161010, end: 20161223
  4. HYDROMOL OINTMENT [Concomitant]
     Dosage: USE WHEN REQUIRED.
     Dates: start: 20160701
  5. TOLTERODINE [Concomitant]
     Active Substance: TOLTERODINE
     Dosage: 2 MILLIGRAM DAILY;
     Dates: start: 20161010
  6. APIXABAN [Concomitant]
     Active Substance: APIXABAN
     Dosage: 10 MILLIGRAM DAILY;
     Dates: start: 20161010
  7. LEVOTHYROXINE SODIUM. [Concomitant]
     Active Substance: LEVOTHYROXINE SODIUM
     Dosage: 100 MICROGRAM DAILY;
     Dates: start: 20161010
  8. LANSOPRAZOLE. [Concomitant]
     Active Substance: LANSOPRAZOLE
     Dosage: AT NIGHT.
     Dates: start: 20161010
  9. SERTRALINE [Concomitant]
     Active Substance: SERTRALINE HYDROCHLORIDE
     Dosage: 200 MILLIGRAM DAILY;
     Dates: start: 20161010
  10. COCODAMOL [Concomitant]
     Active Substance: ACETAMINOPHEN\CODEINE PHOSPHATE
     Dosage: TAKE 1 OR 2 FOUR TIMES A DAY. 30MG/ 500MG
     Dates: start: 20161010, end: 20161223
  11. HYDROXOCOBALAMIN [Concomitant]
     Active Substance: HYDROXOCOBALAMIN
     Dosage: THREE TIMES A WEEK FOR 2 WEEKS THEN 3 MONTHLY. 1MG/ 1ML
     Dates: start: 20161004
  12. LISINOPRIL. [Concomitant]
     Active Substance: LISINOPRIL
     Dosage: 10 MILLIGRAM DAILY;
     Dates: start: 20161010, end: 20161223
  13. LISINOPRIL. [Concomitant]
     Active Substance: LISINOPRIL
     Dates: start: 20161010
  14. FUROSEMIDE. [Suspect]
     Active Substance: FUROSEMIDE
     Indication: CARDIAC FAILURE
     Route: 048

REACTIONS (2)
  - Pancreatitis acute [Recovering/Resolving]
  - Abdominal pain upper [Unknown]

NARRATIVE: CASE EVENT DATE: 20161214
